FAERS Safety Report 9913973 (Version 1)
Quarter: 2014Q1

REPORT INFORMATION
  Report Type: Spontaneous
  Country: US (occurrence: None)
  Receive Date: 20140219
  Receipt Date: 20140219
  Transmission Date: 20141002
  Serious: Yes (Other)
  Sender: FDA-Public Use
  Company Number: None

PATIENT
  Age: 55 Year
  Sex: Male
  Weight: 67.13 kg

DRUGS (3)
  1. MICROZIDE [Suspect]
     Indication: CONSTIPATION
     Dosage: DURATION: 4 PILLS
  2. PAXIL 20 MG TABLET AUROBINDO [Suspect]
     Indication: HALLUCINATION
  3. PAXIL 20 MG TABLET AUROBINDO [Suspect]

REACTIONS (3)
  - Vision blurred [None]
  - Abdominal pain [None]
  - Visual impairment [None]
